FAERS Safety Report 4765488-5 (Version None)
Quarter: 2005Q3

REPORT INFORMATION
  Report Type: 
  Country: None (occurrence: None)
  Receive Date: 20050908
  Receipt Date: 20050826
  Transmission Date: 20060218
  Serious: Yes (Hospitalization)
  Sender: FDA-Public Use
  Company Number: 2005121185

PATIENT
  Age: 57 Year
  Sex: Male

DRUGS (6)
  1. ALDACTONE [Suspect]
     Indication: ILL-DEFINED DISORDER
     Dosage: 1 DOSE FORM (EVERY DAY), ORAL
     Route: 048
  2. DIAZEPAM [Suspect]
     Indication: ILL-DEFINED DISORDER
     Dosage: 3 DOSE FORMS (EVERY DAY), ORAL
     Route: 048
  3. LEGALON (SILYMARIN) [Suspect]
     Indication: ILL-DEFINED DISORDER
     Dosage: 3 DOSE FORMS (EVERY DAY), ORAL
     Route: 048
  4. CETORNAN (ORNITHINE OXOGLURATE) [Suspect]
     Indication: ILL-DEFINED DISORDER
     Dosage: 3 DOSE FORMS (EVERY DAY), ORAL
     Route: 048
  5. ESPERAL (DISULFIRAM) [Suspect]
     Indication: ILL-DEFINED DISORDER
     Dosage: 1.5 DOSE FORM (EVERY DAY), ORAL
     Route: 048
  6. CITALOPRAM HYDROBROMIDE [Suspect]
     Indication: ILL-DEFINED DISORDER
     Dosage: 40 MG (20 MG, EVERY DAY), ORAL
     Route: 048

REACTIONS (5)
  - ASPIRATION [None]
  - BLOOD LACTIC ACID INCREASED [None]
  - CREPITATIONS [None]
  - DEPRESSED LEVEL OF CONSCIOUSNESS [None]
  - VOMITING [None]
